FAERS Safety Report 4590031-3 (Version None)
Quarter: 2005Q1

REPORT INFORMATION
  Report Type: 
  Country: None (occurrence: None)
  Receive Date: 20050216
  Receipt Date: 20050207
  Transmission Date: 20050727
  Serious: Yes (Death)
  Sender: FDA-Public Use
  Company Number: 2005UW01319

PATIENT
  Age: 74 Year
  Sex: Male

DRUGS (1)
  1. IRESSA [Suspect]
     Indication: NON-SMALL CELL LUNG CANCER
     Dosage: 250 MG PO
     Route: 048

REACTIONS (4)
  - ANOREXIA [None]
  - NAUSEA [None]
  - PNEUMONIA [None]
  - PYREXIA [None]
